FAERS Safety Report 5954436-8 (Version None)
Quarter: 2008Q4

REPORT INFORMATION
  Report Type: 
  Country: None (occurrence: None)
  Receive Date: 20081117
  Receipt Date: 20081105
  Transmission Date: 20090506
  Serious: Yes (Other)
  Sender: FDA-Public Use
  Company Number: BR-ROCHE-595739

PATIENT
  Sex: Female
  Weight: 48 kg

DRUGS (6)
  1. RIVOTRIL [Suspect]
     Dosage: STRENGTH: 2MG
     Route: 048
     Dates: start: 19980101, end: 20060101
  2. RIVOTRIL [Suspect]
     Dosage: BATCH NO: RJ0554, STRENGTH: 0.5MG
     Route: 048
     Dates: start: 20081103
  3. DIPROSPAN [Concomitant]
  4. OMEPRAZOLE [Concomitant]
     Indication: WOUND
     Route: 048
  5. ISOFLAVONES [Concomitant]
     Indication: MENOPAUSE
     Route: 048
  6. ACETAMINOPHEN [Concomitant]
     Indication: FIBROMYALGIA
     Route: 048
     Dates: start: 19980101

REACTIONS (4)
  - ABDOMINAL PAIN [None]
  - MOVEMENT DISORDER [None]
  - RETCHING [None]
  - SYNCOPE [None]
